FAERS Safety Report 10077757 (Version 1)
Quarter: 2014Q2

REPORT INFORMATION
  Report Type: Report from Study
  Country: DE (occurrence: DE)
  Receive Date: 20140414
  Receipt Date: 20140414
  Transmission Date: 20141212
  Serious: Yes (Death, Hospitalization)
  Sender: FDA-Public Use
  Company Number: DE-ABBVIE-14P-062-1224418-00

PATIENT
  Sex: Male

DRUGS (2)
  1. HUMIRA [Suspect]
     Indication: RHEUMATOID ARTHRITIS
     Route: 058
     Dates: start: 20110701, end: 20130702
  2. HUMIRA [Suspect]
     Route: 058
     Dates: end: 20140404

REACTIONS (2)
  - Pulmonary embolism [Fatal]
  - Bladder cancer [Fatal]
